FAERS Safety Report 18817660 (Version 4)
Quarter: 2021Q2

REPORT INFORMATION
  Report Type: Spontaneous
  Country: GB (occurrence: GB)
  Receive Date: 20210201
  Receipt Date: 20210524
  Transmission Date: 20210717
  Serious: Yes (Life-Threatening, Other)
  Sender: FDA-Public Use
  Company Number: GB-PFIZER INC-2021077634

PATIENT
  Age: 28 Year
  Sex: Male

DRUGS (3)
  1. ETOPOSIDE. [Suspect]
     Active Substance: ETOPOSIDE
     Indication: TESTICULAR MALIGNANT TERATOMA STAGE III
     Dosage: UNK, CYCLIC
  2. CARBOPLATIN. [Suspect]
     Active Substance: CARBOPLATIN
     Indication: TESTICULAR MALIGNANT TERATOMA STAGE III
     Dosage: UNK, CYCLIC
  3. IFOSFAMIDE. [Suspect]
     Active Substance: IFOSFAMIDE
     Indication: TESTICULAR MALIGNANT TERATOMA STAGE III
     Dosage: UNK, CYCLIC

REACTIONS (2)
  - Thrombocytopenia [Unknown]
  - Retinal haemorrhage [Recovering/Resolving]
